FAERS Safety Report 6936352-8 (Version None)
Quarter: 2010Q3

REPORT INFORMATION
  Report Type: 
  Country: None (occurrence: None)
  Receive Date: 20100823
  Receipt Date: 20100812
  Transmission Date: 20110219
  Serious: Yes (Hospitalization, Disabling)
  Sender: FDA-Public Use
  Company Number: AT-PFIZER INC-2010091610

PATIENT
  Age: 74 Year
  Sex: Male
  Weight: 61.7 kg

DRUGS (2)
  1. SUTENT [Suspect]
     Indication: GASTROINTESTINAL STROMAL TUMOUR
     Dosage: 25 MG, 1X/DAY
     Route: 048
     Dates: start: 20081118, end: 20100526
  2. LEVOTHYROXINE SODIUM [Concomitant]
     Dosage: 75 UG, 1X/DAY

REACTIONS (8)
  - ANAEMIA [None]
  - BRONCHITIS [None]
  - CHILLS [None]
  - DIARRHOEA [None]
  - DYSURIA [None]
  - PYREXIA [None]
  - RENAL FAILURE [None]
  - WHITE BLOOD CELLS URINE POSITIVE [None]
